FAERS Safety Report 9538340 (Version 1)
Quarter: 2013Q3

REPORT INFORMATION
  Report Type: Spontaneous
  Country: CN (occurrence: CN)
  Receive Date: 20130920
  Receipt Date: 20130920
  Transmission Date: 20140515
  Serious: Yes (Hospitalization)
  Sender: FDA-Public Use
  Company Number: CN-ASTRAZENECA-2013SE69015

PATIENT
  Age: 58 Year
  Sex: Male

DRUGS (9)
  1. CRESTOR [Suspect]
     Indication: ARTERIOSCLEROSIS CORONARY ARTERY
     Route: 048
  2. ASPIRIN [Concomitant]
  3. ISOSORBIDE MONONITRATE [Concomitant]
  4. FELODIPINE [Concomitant]
  5. GLIQUIDONE [Concomitant]
  6. ACARBOSE [Concomitant]
  7. MOSAPRIDE [Concomitant]
     Indication: GASTROINTESTINAL HYPOMOTILITY
  8. NIFEDIPINE [Concomitant]
  9. GLIBENCLAMIDE [Concomitant]

REACTIONS (1)
  - Liver injury [Recovering/Resolving]
